FAERS Safety Report 7528061 (Version 2)
Quarter: 2012Q4

REPORT INFORMATION
  Report Type: 
  Country: US (occurrence: US)
  Receive Date: 20100804
  Receipt Date: 20121130
  Transmission Date: 20130627
  Serious: Yes (Hospitalization, Other)
  Sender: FDA-Public Use
  Company Number: US-ELI_LILLY_AND_COMPANY-US201007007350

PATIENT
  Age: 66 Year
  Sex: Female

DRUGS (8)
  1. BYETTA [Suspect]
     Indication: DIABETES MELLITUS
     Route: 058
     Dates: start: 2007, end: 2008
  2. COUMADIN [Concomitant]
  3. INSULIN [Concomitant]
     Indication: DIABETES MELLITUS
  4. METFORMIN [Concomitant]
  5. DEMADEX [Concomitant]
  6. HYZAAR [Concomitant]
  7. BETAPACE [Concomitant]
  8. CRESTOR [Concomitant]

REACTIONS (2)
  - Pancreatitis acute [Unknown]
  - Off label use [Recovered/Resolved]
